FAERS Safety Report 6373840-X (Version None)
Quarter: 2009Q3

REPORT INFORMATION
  Report Type: 
  Country: None (occurrence: None)
  Receive Date: 20090924
  Receipt Date: 20090602
  Transmission Date: 20100115
  Serious: No
  Sender: FDA-Public Use
  Company Number: US-ASTRAZENECA-2009UW14002

PATIENT
  Age: 10 Year
  Sex: Male

DRUGS (3)
  1. SEROQUEL [Suspect]
     Route: 048
  2. DEPAKOTE [Concomitant]
  3. RITALIN [Concomitant]

REACTIONS (3)
  - AGGRESSION [None]
  - DRUG DOSE OMISSION [None]
  - FEELING ABNORMAL [None]
